FAERS Safety Report 11129250 (Version 2)
Quarter: 2015Q2

REPORT INFORMATION
  Report Type: Spontaneous
  Country: US (occurrence: US)
  Receive Date: 20150521
  Receipt Date: 20150624
  Transmission Date: 20150821
  Serious: Yes (Other)
  Sender: FDA-Public Use
  Company Number: US-ASTRAZENECA-2015SE45153

PATIENT
  Sex: Female

DRUGS (1)
  1. SYMBICORT [Suspect]
     Active Substance: BUDESONIDE\FORMOTEROL FUMARATE DIHYDRATE
     Dosage: 160/4.5 TWO PUFFS IN THE MORNING AND TWO PUFFS IN THE EVENING
     Route: 055

REACTIONS (6)
  - Brain hypoxia [Unknown]
  - Irritability [Unknown]
  - Headache [Unknown]
  - Drug dose omission [Unknown]
  - Device malfunction [Unknown]
  - Malaise [Unknown]
